FAERS Safety Report 4812613-3 (Version None)
Quarter: 2005Q4

REPORT INFORMATION
  Report Type: 
  Country: None (occurrence: None)
  Receive Date: 20051028
  Receipt Date: 20041102
  Transmission Date: 20060501
  Serious: No
  Sender: FDA-Public Use
  Company Number: US-GLAXOSMITHKLINE-A0532234A

PATIENT
  Age: 72 Year
  Sex: Female
  Weight: 47.3 kg

DRUGS (9)
  1. ADVAIR DISKUS 100/50 [Suspect]
     Indication: ASTHMA
     Dosage: 1PUFF TWICE PER DAY
     Route: 055
     Dates: start: 20010901, end: 20011001
  2. SEREVENT [Suspect]
     Indication: ASTHMA
     Dosage: 1PUFF TWICE PER DAY
     Route: 055
     Dates: start: 20001201, end: 20030801
  3. AZMACORT [Concomitant]
     Route: 065
  4. ALBUTEROL [Concomitant]
     Dates: end: 19920101
  5. INTAL [Concomitant]
     Dates: end: 19920101
  6. FORADIL [Concomitant]
     Dates: start: 20031201
  7. ATENOLOL [Concomitant]
     Dates: start: 20020501
  8. PREMPRO [Concomitant]
     Dates: start: 19950101, end: 20041001
  9. AMITRIPTYLINE HCL [Concomitant]
     Route: 065
     Dates: start: 20010601

REACTIONS (2)
  - DRUG INEFFECTIVE [None]
  - DYSPHONIA [None]
